FAERS Safety Report 7590344-7 (Version None)
Quarter: 2011Q3

REPORT INFORMATION
  Report Type: 
  Country: None (occurrence: None)
  Receive Date: 20110705
  Receipt Date: 20110622
  Transmission Date: 20111222
  Serious: Yes (Other)
  Sender: FDA-Public Use
  Company Number: US-JNJFOC-20110401732

PATIENT
  Sex: Female
  Weight: 80.74 kg

DRUGS (7)
  1. REMICADE [Suspect]
     Route: 042
     Dates: start: 20091229, end: 20091229
  2. SLEEP MEDICATION NOS [Concomitant]
  3. REMICADE [Suspect]
     Indication: CROHN'S DISEASE
     Route: 042
     Dates: end: 20090629
  4. METHOTREXATE [Concomitant]
  5. OXYCODONE HCL [Concomitant]
  6. UNSPECIFIED DEPRESSION MEDICATION [Concomitant]
  7. REMICADE [Suspect]
     Route: 042
     Dates: start: 20030101

REACTIONS (23)
  - DERMATITIS PSORIASIFORM [None]
  - PSORIATIC ARTHROPATHY [None]
  - PSORIASIS [None]
  - ONYCHOCLASIS [None]
  - BACK PAIN [None]
  - STAPHYLOCOCCAL INFECTION [None]
  - ECZEMA [None]
  - JOINT EFFUSION [None]
  - PYREXIA [None]
  - ALOPECIA AREATA [None]
  - SYSTEMIC LUPUS ERYTHEMATOSUS [None]
  - NAIL DISORDER [None]
  - PAIN [None]
  - JOINT SWELLING [None]
  - ANXIETY [None]
  - RHEUMATOID ARTHRITIS [None]
  - LEUKOCYTOSIS [None]
  - DYSGRAPHIA [None]
  - ACTIVITIES OF DAILY LIVING IMPAIRED [None]
  - RASH GENERALISED [None]
  - EAR INFECTION [None]
  - HEPATIC ENZYME INCREASED [None]
  - ANTIBODY TEST POSITIVE [None]
